FAERS Safety Report 15208977 (Version 2)
Quarter: 2018Q3

REPORT INFORMATION
  Report Type: Spontaneous
  Country: US (occurrence: US)
  Receive Date: 20180727
  Receipt Date: 20180817
  Transmission Date: 20181010
  Serious: Yes (Hospitalization, Disabling)
  Sender: FDA-Public Use
  Company Number: US-JNJFOC-20180729812

PATIENT
  Age: 67 Year
  Sex: Male

DRUGS (1)
  1. INVOKANA [Suspect]
     Active Substance: CANAGLIFLOZIN
     Indication: TYPE 2 DIABETES MELLITUS
     Route: 048
     Dates: start: 20170427

REACTIONS (5)
  - Leg amputation [Recovering/Resolving]
  - Sepsis [Recovering/Resolving]
  - Haemorrhagic anaemia [Recovering/Resolving]
  - Acute kidney injury [Recovered/Resolved]
  - Arthritis bacterial [Recovering/Resolving]

NARRATIVE: CASE EVENT DATE: 201709
